FAERS Safety Report 4691132-1 (Version None)
Quarter: 2005Q2

REPORT INFORMATION
  Report Type: 
  Country: None (occurrence: None)
  Receive Date: 20050610
  Receipt Date: 20050527
  Transmission Date: 20051028
  Serious: Yes (Other)
  Sender: FDA-Public Use
  Company Number: 2005S1000166

PATIENT
  Age: 30 Year
  Sex: Female

DRUGS (1)
  1. ACITRETIN (ACITRETIN) (10 MG) [Suspect]
     Indication: PSORIASIS
     Dosage: 10 MG; QD; PO
     Route: 048
     Dates: start: 19951005, end: 20041214

REACTIONS (2)
  - DRUG EXPOSURE DURING PREGNANCY [None]
  - PREGNANCY [None]
